FAERS Safety Report 5487374-8 (Version None)
Quarter: 2007Q4

REPORT INFORMATION
  Report Type: 
  Country: None (occurrence: None)
  Receive Date: 20071016
  Receipt Date: 20071016
  Transmission Date: 20080405
  Serious: Yes (Life-Threatening, Hospitalization)
  Sender: FDA-Public Use
  Company Number: JP-BOEHRINGER INGELHEIM PHARMACEUTICALS, INC.-2007-BP-17922NB

PATIENT
  Sex: Male

DRUGS (3)
  1. BI-SIFROL TABLETS [Suspect]
     Indication: PARKINSONISM
     Route: 048
     Dates: start: 20070706, end: 20070720
  2. SEPAMIT [Concomitant]
     Route: 048
  3. PICLONADINE [Concomitant]
     Route: 048

REACTIONS (1)
  - COMA [None]
